FAERS Safety Report 5079667-3 (Version None)
Quarter: 2006Q3

REPORT INFORMATION
  Report Type: 
  Country: None (occurrence: None)
  Receive Date: 20060808
  Receipt Date: 20060721
  Transmission Date: 20061208
  Serious: Yes (Hospitalization)
  Sender: FDA-Public Use
  Company Number: US200607004121

PATIENT
  Age: 80 Year
  Sex: Female

DRUGS (6)
  1. FORTEO [Suspect]
     Indication: OSTEOPOROSIS
     Dates: start: 20060401
  2. FORTEO [Concomitant]
  3. TRAMADOL HCL [Concomitant]
  4. VITAMINS [Concomitant]
  5. CODEINE [Concomitant]
  6. TYLENOL /USA/ (PARACETAMOL) [Concomitant]

REACTIONS (6)
  - BLOOD POTASSIUM DECREASED [None]
  - BLOOD SODIUM DECREASED [None]
  - DEHYDRATION [None]
  - DRUG HYPERSENSITIVITY [None]
  - PHARMACEUTICAL PRODUCT COMPLAINT [None]
  - VITAMIN D DECREASED [None]
